FAERS Safety Report 20851485 (Version 2)
Quarter: 2022Q2

REPORT INFORMATION
  Report Type: Spontaneous
  Country: CZ (occurrence: CZ)
  Receive Date: 20220519
  Receipt Date: 20220614
  Transmission Date: 20220721
  Serious: Yes (Other)
  Sender: FDA-Public Use
  Company Number: CZ-ELI_LILLY_AND_COMPANY-CZ202205000475

PATIENT
  Sex: Female

DRUGS (8)
  1. RISPERDAL [Suspect]
     Active Substance: RISPERIDONE
     Indication: Schizophrenia
     Dosage: UNK, UNKNOWN
     Route: 065
  2. INVEGA [Suspect]
     Active Substance: PALIPERIDONE
     Indication: Depression
     Dosage: UNK, UNKNOWN
     Route: 048
  3. INVEGA [Suspect]
     Active Substance: PALIPERIDONE
     Dosage: INJECTION, UNKNOWN
     Route: 065
  4. PALIPERIDONE PALMITATE [Suspect]
     Active Substance: PALIPERIDONE PALMITATE
     Indication: Product used for unknown indication
     Route: 030
  5. PALIPERIDONE PALMITATE [Suspect]
     Active Substance: PALIPERIDONE PALMITATE
  6. PALIPERIDONE PALMITATE [Suspect]
     Active Substance: PALIPERIDONE PALMITATE
  7. ARIPIPRAZOLE [Suspect]
     Active Substance: ARIPIPRAZOLE
     Indication: Schizophrenia
     Route: 065
  8. OLANZAPINE [Suspect]
     Active Substance: OLANZAPINE
     Indication: Depression
     Route: 048

REACTIONS (7)
  - Oculogyric crisis [Recovered/Resolved]
  - Disturbance in attention [Recovering/Resolving]
  - Amenorrhoea [Unknown]
  - Hypersomnia [Unknown]
  - Negative symptoms in schizophrenia [Unknown]
  - Extrapyramidal disorder [Recovered/Resolved]
  - Impaired quality of life [Recovered/Resolved]
